FAERS Safety Report 21411909 (Version 1)
Quarter: 2022Q4

REPORT INFORMATION
  Report Type: Spontaneous
  Country: CH (occurrence: CH)
  Receive Date: 20221005
  Receipt Date: 20221005
  Transmission Date: 20230113
  Serious: Yes (Death, Hospitalization, Other)
  Sender: FDA-Public Use
  Company Number: CH-BAYER-2022A133478

PATIENT
  Age: 64 Year
  Sex: Male
  Weight: 127 kg

DRUGS (2)
  1. ULTRAVIST [Suspect]
     Active Substance: IOPROMIDE
     Indication: Computerised tomogram
     Dosage: 132 ML, ONCE
     Route: 042
     Dates: start: 20220906, end: 20220906
  2. ULTRAVIST [Suspect]
     Active Substance: IOPROMIDE
     Indication: Cancer staging

REACTIONS (13)
  - Contrast media reaction [Fatal]
  - Cardiac arrest [Fatal]
  - Anaphylactic reaction [Fatal]
  - Dyspnoea [Not Recovered/Not Resolved]
  - Chest pain [None]
  - Loss of consciousness [Not Recovered/Not Resolved]
  - Hypoxic-ischaemic encephalopathy [Not Recovered/Not Resolved]
  - Acute kidney injury [Not Recovered/Not Resolved]
  - Pneumonia aspiration [Not Recovered/Not Resolved]
  - Sternal fracture [Not Recovered/Not Resolved]
  - Rib fracture [Not Recovered/Not Resolved]
  - Pneumothorax [Not Recovered/Not Resolved]
  - Subcutaneous emphysema [Not Recovered/Not Resolved]

NARRATIVE: CASE EVENT DATE: 20220906
